FAERS Safety Report 24228158 (Version 1)
Quarter: 2024Q3

REPORT INFORMATION
  Report Type: Spontaneous
  Country: US (occurrence: None)
  Receive Date: 20240819
  Receipt Date: 20240819
  Transmission Date: 20241017
  Serious: Yes (Hospitalization)
  Sender: Public
  Company Number: None

PATIENT
  Age: 18 Year
  Sex: Male
  Weight: 42.7 kg

DRUGS (5)
  1. MINOXIDIL [Suspect]
     Active Substance: MINOXIDIL
     Indication: Hypertension
     Dosage: 5 MG DAILY ORAL
     Route: 048
     Dates: start: 20110630, end: 20240816
  2. AMLODIPINE MESYLATE\OLMESARTAN MEDOXOMIL [Suspect]
     Active Substance: AMLODIPINE MESYLATE\OLMESARTAN MEDOXOMIL
  3. CARVEDILOL [Suspect]
     Active Substance: CARVEDILOL
  4. CLONIDINE [Suspect]
     Active Substance: CLONIDINE
  5. LISINOPRIL [Suspect]
     Active Substance: LISINOPRIL

REACTIONS (2)
  - Pericardial effusion [None]
  - Renal transplant [None]

NARRATIVE: CASE EVENT DATE: 20240710
